FAERS Safety Report 6671793-8 (Version None)
Quarter: 2010Q2

REPORT INFORMATION
  Report Type: 
  Country: None (occurrence: None)
  Receive Date: 20100406
  Receipt Date: 20100406
  Transmission Date: 20101027
  Serious: No
  Sender: FDA-Public Use
  Company Number: None

PATIENT
  Age: 26 Year
  Sex: Female
  Weight: 102.0593 kg

DRUGS (1)
  1. ADVAIR DISKUS 250/50 [Suspect]
     Indication: PNEUMONIA
     Dosage: 250/50 ONCE RETROBULBAR
     Route: 056

REACTIONS (1)
  - VISION BLURRED [None]
